FAERS Safety Report 25060649 (Version 9)
Quarter: 2025Q3

REPORT INFORMATION
  Report Type: Report from Study
  Country: EU (occurrence: EU)
  Receive Date: 20250310
  Receipt Date: 20250923
  Transmission Date: 20251021
  Serious: Yes (Hospitalization, Disabling)
  Sender: PFIZER
  Company Number: EU-PFM-2025-00876

PATIENT
  Age: 79 Year
  Sex: Male
  Weight: 80 kg

DRUGS (12)
  1. ENCORAFENIB [Suspect]
     Active Substance: ENCORAFENIB
     Indication: Metastatic malignant melanoma
     Dosage: 450 MG, DAILY
     Route: 065
     Dates: start: 20250124, end: 20250127
  2. ENCORAFENIB [Suspect]
     Active Substance: ENCORAFENIB
     Indication: BRAF gene mutation
     Dosage: 300 MG, DAILY
     Route: 065
     Dates: start: 20250202
  3. BINIMETINIB [Suspect]
     Active Substance: BINIMETINIB
     Indication: Metastatic malignant melanoma
     Dosage: 90 MG, DAILY
     Route: 065
     Dates: start: 20250124, end: 20250127
  4. BINIMETINIB [Suspect]
     Active Substance: BINIMETINIB
     Indication: BRAF gene mutation
     Dosage: 60 MG, DAILY
     Route: 065
     Dates: start: 20250202
  5. ATORVASTATIN [Concomitant]
     Active Substance: ATORVASTATIN
     Indication: Dyslipidaemia
     Dosage: 10 MG, QD (1/DAY)
     Route: 065
     Dates: start: 20241203
  6. RAMIPRIL [Concomitant]
     Active Substance: RAMIPRIL
     Indication: Hypertension
     Dosage: 1.25 MG, QD (1/DAY)
     Route: 065
     Dates: start: 20250115
  7. SPIRONOLACTONE [Concomitant]
     Active Substance: SPIRONOLACTONE
     Indication: Hypertension
     Dosage: 25 MG, QD (1/DAY)
     Route: 065
     Dates: start: 20241203
  8. ACETAMINOPHEN [Concomitant]
     Active Substance: ACETAMINOPHEN
     Indication: Pain
     Dosage: 50 MG, QD (1/DAY)
     Route: 065
     Dates: start: 20241202
  9. SOLIFENACIN [Concomitant]
     Active Substance: SOLIFENACIN
     Indication: Urinary incontinence
     Dosage: 5 MG, QD (1/DAY)
     Route: 065
     Dates: start: 20240718
  10. POLYETHYLENE GLYCOL 4000 [Concomitant]
     Active Substance: POLYETHYLENE GLYCOL 4000
     Indication: Constipation
     Dosage: 10 G, QD (1/DAY)
     Route: 065
     Dates: start: 20240718
  11. BISOPROLOL [Concomitant]
     Active Substance: BISOPROLOL
     Indication: Myocarditis
     Dosage: 1.25 MG, QD (1/DAY)
     Route: 065
     Dates: start: 20240723
  12. HYDROCORTISONE [Concomitant]
     Active Substance: HYDROCORTISONE
     Indication: Myositis
     Dosage: 10 MG, BID (2/DAY)
     Route: 065
     Dates: start: 20240905

REACTIONS (10)
  - General physical health deterioration [Recovered/Resolved]
  - Nausea [Recovered/Resolved]
  - Pneumonia [Recovered/Resolved]
  - Fatigue [Not Recovered/Not Resolved]
  - Back pain [Not Recovered/Not Resolved]
  - Weight decreased [Not Recovered/Not Resolved]
  - Acute kidney injury [Recovered/Resolved]
  - Cough [Unknown]
  - Rectal haemorrhage [Recovered/Resolved]
  - Cough [Not Recovered/Not Resolved]

NARRATIVE: CASE EVENT DATE: 20250128
